FAERS Safety Report 8870481 (Version 1)
Quarter: 2012Q4

REPORT INFORMATION
  Report Type: Spontaneous
  Country: US (occurrence: None)
  Receive Date: 20121026
  Receipt Date: 20121026
  Transmission Date: 20130627
  Serious: Yes (Other)
  Sender: FDA-Public Use
  Company Number: None

PATIENT
  Age: 14 Year
  Sex: Male
  Weight: 72.58 kg

DRUGS (1)
  1. PAROXETINE HYDROCHLORIDE CONTROLLED-RELEASE [Suspect]
     Indication: SOCIAL ANXIETY DISORDER
     Route: 048
     Dates: start: 20110927, end: 20120409

REACTIONS (10)
  - Depression [None]
  - Anxiety [None]
  - Mania [None]
  - Physical assault [None]
  - Anger [None]
  - Suicidal ideation [None]
  - Overdose [None]
  - Pyromania [None]
  - Legal problem [None]
  - Amnesia [None]
